FAERS Safety Report 5401723-8 (Version None)
Quarter: 2007Q3

REPORT INFORMATION
  Report Type: 
  Country: None (occurrence: None)
  Receive Date: 20070731
  Receipt Date: 20070719
  Transmission Date: 20080115
  Serious: Yes (Other)
  Sender: FDA-Public Use
  Company Number: US-ELI_LILLY_AND_COMPANY-US200707004937

PATIENT
  Age: 48 Year
  Sex: Female

DRUGS (6)
  1. CYMBALTA [Suspect]
     Indication: ARTHRALGIA
     Dosage: 30 MG, 2/D
     Dates: start: 20060901, end: 20061225
  2. CYMBALTA [Suspect]
     Dosage: 30 MG, 2/D
     Dates: start: 20061229, end: 20070524
  3. CYMBALTA [Suspect]
     Dosage: 20 MG, 2/D
     Dates: start: 20070525, end: 20070529
  4. CYMBALTA [Suspect]
     Dosage: 20 MG, DAILY (1/D)
     Dates: start: 20070530, end: 20070605
  5. CYMBALTA [Suspect]
     Dosage: 20 MG, OTHER
     Dates: start: 20070606, end: 20070716
  6. PRILOSEC [Concomitant]
     Indication: GASTROOESOPHAGEAL REFLUX DISEASE

REACTIONS (9)
  - ANXIETY [None]
  - BLOOD CHOLESTEROL INCREASED [None]
  - CEREBROVASCULAR ACCIDENT [None]
  - DYSPHEMIA [None]
  - FACIAL PARESIS [None]
  - HEMIPLEGIA [None]
  - INFLUENZA LIKE ILLNESS [None]
  - INSOMNIA [None]
  - NAUSEA [None]
